FAERS Safety Report 10415034 (Version 2)
Quarter: 2015Q1

REPORT INFORMATION
  Report Type: Report from Study
  Country: KR (occurrence: KR)
  Receive Date: 20140828
  Receipt Date: 20150209
  Transmission Date: 20150720
  Serious: Yes (Hospitalization)
  Sender: FDA-Public Use
  Company Number: KR-SA-2014SA114122

PATIENT
  Age: 72 Year
  Sex: Male
  Weight: 79 kg

DRUGS (2)
  1. LANTUS [Suspect]
     Active Substance: INSULIN GLARGINE
     Indication: DIABETES MELLITUS
     Dosage: DOSE:20 UNIT(S)
     Route: 065
  2. HUMALOG [Suspect]
     Active Substance: INSULIN LISPRO
     Indication: DIABETES MELLITUS
     Dosage: DOSE: 8-8-8 UNIT DOSE:8 UNIT(S)
     Route: 065

REACTIONS (4)
  - Road traffic accident [Recovering/Resolving]
  - Musculoskeletal discomfort [Recovering/Resolving]
  - Nerve injury [Unknown]
  - Limb discomfort [Unknown]

NARRATIVE: CASE EVENT DATE: 20140801
